FAERS Safety Report 13141146 (Version 4)
Quarter: 2018Q2

REPORT INFORMATION
  Report Type: Report from Study
  Country: GB (occurrence: GB)
  Receive Date: 20170123
  Receipt Date: 20180423
  Transmission Date: 20180711
  Serious: Yes (Death)
  Sender: FDA-Public Use
  Company Number: GB-PFIZER INC-2017025425

PATIENT
  Sex: Male

DRUGS (11)
  1. MORPHINE [Concomitant]
     Active Substance: MORPHINE
     Dosage: UNK
  2. PREGABALIN. [Suspect]
     Active Substance: PREGABALIN
     Dosage: UNK
  3. CODEINE [Concomitant]
     Active Substance: CODEINE
     Dosage: UNK
  4. LEVAMISOLE [Concomitant]
     Active Substance: LEVAMISOLE
     Dosage: UNK
  5. TEMAZEPAM. [Concomitant]
     Active Substance: TEMAZEPAM
     Dosage: UNK
  6. METHADONE [Concomitant]
     Active Substance: METHADONE HYDROCHLORIDE
     Dosage: UNK
  7. NOSCAPINE [Concomitant]
     Active Substance: NOSCAPINE
     Dosage: UNK
  8. PAPAVERINE [Concomitant]
     Active Substance: PAPAVERINE
     Dosage: UNK
  9. MIRTAZAPINE. [Concomitant]
     Active Substance: MIRTAZAPINE
     Dosage: UNK
  10. COCAINE [Concomitant]
     Active Substance: COCAINE
     Dosage: UNK
  11. DIAZEPAM. [Concomitant]
     Active Substance: DIAZEPAM
     Dosage: UNK

REACTIONS (1)
  - Toxicity to various agents [Fatal]
